FAERS Safety Report 8872894 (Version 1)
Quarter: 2012Q4

REPORT INFORMATION
  Report Type: 
  Country: US (occurrence: US)
  Receive Date: 20121026
  Receipt Date: 20121026
  Transmission Date: 20130627
  Serious: No
  Sender: FDA-Public Use
  Company Number: US-AMGEN-USASP2012049964

PATIENT
  Age: 34 Year
  Sex: Female
  Weight: 71.66 kg

DRUGS (4)
  1. ENBREL [Suspect]
     Indication: PRODUCT USED FOR UNKNOWN INDICATION
     Dosage: 50 mg, qwk
     Route: 058
  2. TYLENOL /00020001/ [Concomitant]
     Dosage: 325 mg, UNK
     Route: 048
  3. POTASSIUM [Concomitant]
     Dosage: 75 mg, UNK
     Route: 048
  4. NEXIUM                             /01479302/ [Concomitant]
     Dosage: 20 mg, UNK
     Route: 048

REACTIONS (2)
  - Injection site erythema [Unknown]
  - Injection site warmth [Unknown]
